FAERS Safety Report 18818588 (Version 1)
Quarter: 2021Q1

REPORT INFORMATION
  Report Type: Spontaneous
  Country: FR (occurrence: FR)
  Receive Date: 20210201
  Receipt Date: 20210201
  Transmission Date: 20210419
  Serious: Yes (Other)
  Sender: FDA-Public Use
  Company Number: FR-OTSUKA-2021_002216

PATIENT
  Age: 38 Year
  Sex: Male
  Weight: 80 kg

DRUGS (1)
  1. ABILIFY MAINTENA [Suspect]
     Active Substance: ARIPIPRAZOLE
     Indication: PERSONAL RELATIONSHIP ISSUE
     Dosage: 1 DF, UNK
     Route: 030
     Dates: start: 20160301, end: 20170805

REACTIONS (10)
  - Sedation [Recovered/Resolved]
  - Furuncle [Recovered/Resolved]
  - Akathisia [Recovered/Resolved]
  - Impaired driving ability [Recovered/Resolved]
  - Product use in unapproved indication [Unknown]
  - Anal eczema [Recovered/Resolved]
  - Suicidal ideation [Recovered/Resolved]
  - Dysstasia [Recovered/Resolved]
  - Panic attack [Recovered/Resolved]
  - Nightmare [Recovered/Resolved]

NARRATIVE: CASE EVENT DATE: 20160301
